FAERS Safety Report 16881275 (Version 2)
Quarter: 2019Q4

REPORT INFORMATION
  Report Type: Spontaneous
  Country: US (occurrence: US)
  Receive Date: 20191003
  Receipt Date: 20191017
  Transmission Date: 20200122
  Serious: Yes (Life-Threatening, Hospitalization, Other)
  Sender: FDA-Public Use
  Company Number: US-AMGEN-USASP2019161313

PATIENT
  Age: 12 Year
  Sex: Female
  Weight: 49.9 kg

DRUGS (2)
  1. BLINCYTO [Suspect]
     Active Substance: BLINATUMOMAB
     Indication: ACUTE LYMPHOCYTIC LEUKAEMIA RECURRENT
     Dosage: 5 MICROGRAM/SQ. METER, QD
     Route: 042
     Dates: start: 20190924, end: 201909
  2. BLINCYTO [Suspect]
     Active Substance: BLINATUMOMAB
     Dosage: 15 MICROGRAM/SQ. METER, QD
     Route: 042
     Dates: start: 20191001

REACTIONS (1)
  - Cytokine release syndrome [Recovered/Resolved]

NARRATIVE: CASE EVENT DATE: 20190925
